FAERS Safety Report 6612226-7 (Version None)
Quarter: 2010Q1

REPORT INFORMATION
  Report Type: 
  Country: None (occurrence: None)
  Receive Date: 20100222
  Receipt Date: 20100129
  Transmission Date: 20100710
  Serious: No
  Sender: FDA-Public Use
  Company Number: 2010-00212

PATIENT
  Age: 31 Year
  Sex: Female
  Weight: 43.0917 kg

DRUGS (1)
  1. ZICAM COLD REMEDY RAPIDMELTS [Suspect]
     Dosage: Q 3 HRS - 4 DAYS
     Dates: start: 20100124, end: 20100127

REACTIONS (1)
  - AGEUSIA [None]
